FAERS Safety Report 14211639 (Version 1)
Quarter: 2017Q4

REPORT INFORMATION
  Report Type: Spontaneous
  Country: US (occurrence: None)
  Receive Date: 20171121
  Receipt Date: 20171121
  Transmission Date: 20180321
  Serious: No
  Sender: FDA-Public Use
  Company Number: None

PATIENT
  Age: 46 Year
  Sex: Male

DRUGS (11)
  1. GABAPENTIN. [Concomitant]
     Active Substance: GABAPENTIN
  2. SOMA [Concomitant]
     Active Substance: CARISOPRODOL
  3. ATORVASTATIN [Concomitant]
     Active Substance: ATORVASTATIN
  4. METFORMIN [Concomitant]
     Active Substance: METFORMIN HYDROCHLORIDE
  5. RAMIPRIL. [Concomitant]
     Active Substance: RAMIPRIL
  6. OMEPRAZOLE. [Concomitant]
     Active Substance: OMEPRAZOLE
  7. PREVALITE [Concomitant]
     Active Substance: CHOLESTYRAMINE
  8. ATORVASTATIN [Concomitant]
     Active Substance: ATORVASTATIN
  9. ALFUZOSIN [Concomitant]
     Active Substance: ALFUZOSIN
  10. ZETIA [Concomitant]
     Active Substance: EZETIMIBE
  11. OCALIVA [Suspect]
     Active Substance: OBETICHOLIC ACID
     Indication: BILIARY CIRRHOSIS PRIMARY
     Route: 048
     Dates: start: 20170210, end: 20171113

REACTIONS (1)
  - Pruritus [None]

NARRATIVE: CASE EVENT DATE: 2017
